FAERS Safety Report 20063168 (Version 1)
Quarter: 2021Q4

REPORT INFORMATION
  Report Type: Report from Study
  Country: AU (occurrence: AU)
  Receive Date: 20211112
  Receipt Date: 20211112
  Transmission Date: 20220303
  Serious: Yes (Other)
  Sender: FDA-Public Use
  Company Number: AU-JNJFOC-20211113030

PATIENT
  Age: 46 Year
  Sex: Male
  Weight: 90 kg

DRUGS (3)
  1. SPRAVATO [Suspect]
     Active Substance: ESKETAMINE
     Indication: Depression
     Dosage: 56 MG, TOTAL 4 DOSES
     Dates: start: 20211020, end: 20211029
  2. SPRAVATO [Suspect]
     Active Substance: ESKETAMINE
     Dosage: 84 MG, TOTAL 2 DOSES
     Dates: start: 20211103
  3. PARNATE [Concomitant]
     Active Substance: TRANYLCYPROMINE SULFATE
     Indication: Depression
     Route: 048
     Dates: start: 20210917

REACTIONS (7)
  - Hallucination, visual [Unknown]
  - Suicidal ideation [Not Recovered/Not Resolved]
  - Thinking abnormal [Unknown]
  - Tearfulness [Unknown]
  - Feeling abnormal [Unknown]
  - Depression [Unknown]
  - Dissociation [Recovered/Resolved]

NARRATIVE: CASE EVENT DATE: 20211020
